FAERS Safety Report 11205554 (Version 5)
Quarter: 2015Q4

REPORT INFORMATION
  Report Type: Spontaneous
  Country: US (occurrence: US)
  Receive Date: 20150622
  Receipt Date: 20151113
  Transmission Date: 20160304
  Serious: No
  Sender: FDA-Public Use
  Company Number: US-PFIZER INC-2015200243

PATIENT
  Age: 86 Year
  Sex: Female
  Weight: 45.81 kg

DRUGS (2)
  1. SUTENT [Suspect]
     Active Substance: SUNITINIB MALATE
     Indication: RENAL CANCER
     Dosage: 25 MG, DAILY
     Route: 048
     Dates: start: 20150610, end: 20150807
  2. SUTENT [Suspect]
     Active Substance: SUNITINIB MALATE
     Dosage: 25 MG, DAILY
     Route: 048
     Dates: start: 20150601, end: 20151013

REACTIONS (8)
  - Dysarthria [Unknown]
  - Weight decreased [Unknown]
  - Chest pain [Unknown]
  - Constipation [Unknown]
  - Asthenia [Unknown]
  - Haemoglobin decreased [Unknown]
  - Headache [Unknown]
  - Palpitations [Unknown]

NARRATIVE: CASE EVENT DATE: 20150713
